FAERS Safety Report 16782497 (Version 2)
Quarter: 2020Q1

REPORT INFORMATION
  Report Type: Spontaneous
  Country: US (occurrence: US)
  Receive Date: 20190906
  Receipt Date: 20200117
  Transmission Date: 20200409
  Serious: No
  Sender: FDA-Public Use
  Company Number: US-BAUSCH-BL-2019-023198

PATIENT
  Age: 55 Year
  Sex: Female

DRUGS (3)
  1. TIMOPTIC [Suspect]
     Active Substance: TIMOLOL MALEATE
     Dosage: AS DIRECTED
     Route: 065
     Dates: start: 20190804
  2. TIMOPTIC [Suspect]
     Active Substance: TIMOLOL MALEATE
     Route: 065
     Dates: start: 20200105
  3. TIMOPTIC [Suspect]
     Active Substance: TIMOLOL MALEATE
     Indication: GLAUCOMA
     Dosage: STARTED SINCE AT LEAST DEC/2018
     Route: 065
     Dates: start: 201812

REACTIONS (3)
  - Eye irritation [Unknown]
  - Product quality issue [Unknown]
  - Inappropriate schedule of product administration [Unknown]

NARRATIVE: CASE EVENT DATE: 201908
